FAERS Safety Report 7708838-X (Version None)
Quarter: 2011Q3

REPORT INFORMATION
  Report Type: 
  Country: None (occurrence: None)
  Receive Date: 20110825
  Receipt Date: 20110819
  Transmission Date: 20111222
  Serious: Yes (Death, Hospitalization, Other)
  Sender: FDA-Public Use
  Company Number: FR-PFIZER INC-2005084824

PATIENT
  Age: 83 Year
  Sex: Male
  Weight: 58 kg

DRUGS (9)
  1. ASPIRIN [Suspect]
     Dosage: UNK
  2. ZOLOFT [Suspect]
     Dosage: 1 DOSE, ONCE A DAY
     Route: 048
     Dates: start: 20050401, end: 20050408
  3. DEBRIDAT [Suspect]
     Dosage: UNK, DAILY
     Route: 048
     Dates: end: 20050408
  4. CORDARONE [Suspect]
     Dosage: UNK
  5. PLAVIX [Suspect]
     Dosage: 75 MG, 1X/DAY
     Route: 048
     Dates: end: 20050408
  6. DIGOXIN [Suspect]
     Dosage: 125 UG, 1X/DAY
     Route: 048
     Dates: end: 20050408
  7. VOLTAREN [Suspect]
     Dosage: 50 MG, 1X/DAY
     Route: 048
     Dates: end: 20050408
  8. ACETAMINOPHEN [Suspect]
     Dosage: 1G, DIALY
     Route: 048
     Dates: end: 20050408
  9. LORAZEPAM [Concomitant]
     Dosage: UNK

REACTIONS (14)
  - NERVOUS SYSTEM DISORDER [None]
  - HAEMATOCRIT DECREASED [None]
  - C-REACTIVE PROTEIN INCREASED [None]
  - CONFUSIONAL STATE [None]
  - INFLAMMATION [None]
  - HYPONATRAEMIA [None]
  - LUNG DISORDER [None]
  - CONDITION AGGRAVATED [None]
  - COMA [None]
  - ALTERED STATE OF CONSCIOUSNESS [None]
  - PYREXIA [None]
  - PROTEIN TOTAL DECREASED [None]
  - QUADRIPLEGIA [None]
  - URINE SODIUM DECREASED [None]
